FAERS Safety Report 14229317 (Version 1)
Quarter: 2017Q4

REPORT INFORMATION
  Report Type: Spontaneous
  Country: US (occurrence: US)
  Receive Date: 20171128
  Receipt Date: 20171128
  Transmission Date: 20180321
  Serious: No
  Sender: FDA-Public Use
  Company Number: US-PFIZER INC-2017508874

PATIENT
  Sex: Female

DRUGS (1)
  1. ADVIL [Suspect]
     Active Substance: IBUPROFEN
     Indication: DISCOMFORT
     Dosage: 2 DF, EVERY THREE HOURS

REACTIONS (2)
  - Inappropriate schedule of drug administration [Unknown]
  - Abdominal pain upper [Unknown]
